FAERS Safety Report 15096979 (Version 2)
Quarter: 2018Q3

REPORT INFORMATION
  Report Type: Spontaneous
  Country: DE (occurrence: DE)
  Receive Date: 20180702
  Receipt Date: 20180717
  Transmission Date: 20181010
  Serious: Yes (Death, Life-Threatening, Hospitalization, Other)
  Sender: FDA-Public Use
  Company Number: DE-WEST-WARD PHARMACEUTICALS CORP.-DE-H14001-18-05247

PATIENT
  Age: 73 Year
  Sex: Female
  Weight: 106 kg

DRUGS (50)
  1. FOLINIC ACID [Suspect]
     Active Substance: LEUCOVORIN
     Route: 042
  2. FOLINIC ACID [Suspect]
     Active Substance: LEUCOVORIN
     Route: 042
  3. FOLINIC ACID [Suspect]
     Active Substance: LEUCOVORIN
     Route: 042
  4. 5?FU [Suspect]
     Active Substance: FLUOROURACIL
     Indication: COLORECTAL CANCER METASTATIC
     Dosage: 720 MG BOLUS? 1800 MG DRIP (1)
     Route: 042
     Dates: start: 20140822, end: 20140823
  5. 5?FU [Suspect]
     Active Substance: FLUOROURACIL
     Dosage: 1600 MG BOLUS?2400 MG DRIP ()
     Route: 042
  6. 5?FU [Suspect]
     Active Substance: FLUOROURACIL
     Dosage: 1280 MG BOLUS ?1900 MG DRIP ()
     Route: 042
  7. GLANDOMED [Concomitant]
     Indication: MUCOSAL INFLAMMATION
     Dosage: ()
     Route: 065
     Dates: start: 20131029
  8. URO?TABLINEN [Concomitant]
     Indication: URINARY TRACT INFECTION
     Route: 048
  9. FOLINIC ACID [Suspect]
     Active Substance: LEUCOVORIN
     Route: 042
  10. FOLINIC ACID [Suspect]
     Active Substance: LEUCOVORIN
     Route: 042
  11. BEVACIZUMAB. [Suspect]
     Active Substance: BEVACIZUMAB
     Indication: COLORECTAL CANCER METASTATIC
     Route: 042
     Dates: start: 20131210, end: 20131210
  12. RAMIPRIL. [Concomitant]
     Active Substance: RAMIPRIL
     Indication: HYPERTENSION
     Route: 048
  13. SODIUM CHLORIDE. [Concomitant]
     Active Substance: SODIUM CHLORIDE
     Indication: BLOOD CREATININE INCREASED
     Dosage: ()
     Route: 042
  14. FOLINIC ACID [Suspect]
     Active Substance: LEUCOVORIN
     Route: 042
     Dates: start: 20140326, end: 20140327
  15. FOLINIC ACID [Suspect]
     Active Substance: LEUCOVORIN
     Route: 042
  16. OXALIPLATIN. [Suspect]
     Active Substance: OXALIPLATIN
     Route: 042
     Dates: start: 20140326, end: 20140327
  17. OXALIPLATIN. [Suspect]
     Active Substance: OXALIPLATIN
     Route: 042
  18. FOLINIC ACID [Suspect]
     Active Substance: LEUCOVORIN
     Indication: COLORECTAL CANCER METASTATIC
     Route: 042
  19. FOLINIC ACID [Suspect]
     Active Substance: LEUCOVORIN
     Route: 042
  20. FOLINIC ACID [Suspect]
     Active Substance: LEUCOVORIN
     Route: 042
  21. 5?FU [Suspect]
     Active Substance: FLUOROURACIL
     Dosage: 720 MG BOLUS ?1800 MG DRIP (1)
     Route: 042
     Dates: start: 20140715, end: 20140716
  22. 5?FU [Suspect]
     Active Substance: FLUOROURACIL
     Dosage: 1280 MG BOLUS?1900 MG DRIP ()
     Route: 042
  23. OXALIPLATIN. [Suspect]
     Active Substance: OXALIPLATIN
     Indication: COLORECTAL CANCER METASTATIC
     Route: 042
  24. FOLINIC ACID [Suspect]
     Active Substance: LEUCOVORIN
     Route: 042
  25. FOLINIC ACID [Suspect]
     Active Substance: LEUCOVORIN
     Route: 042
  26. 5?FU [Suspect]
     Active Substance: FLUOROURACIL
     Dosage: 720 MG BOLUS?1800 MG DRIP (1)
     Route: 042
     Dates: start: 20140603, end: 20140604
  27. 5?FU [Suspect]
     Active Substance: FLUOROURACIL
     Dosage: 1280 MG BOLUS?1900 MG DRIP ()
     Route: 042
  28. NOVAMINSULFON [Concomitant]
     Active Substance: METAMIZOLE
     Indication: PAIN
     Route: 048
  29. L?THYROXIN [Concomitant]
     Active Substance: LEVOTHYROXINE SODIUM
     Indication: HYPOTHYROIDISM
     Route: 048
  30. NEULASTA [Concomitant]
     Active Substance: PEGFILGRASTIM
     Indication: PROPHYLAXIS
     Route: 058
     Dates: start: 20140605, end: 20140703
  31. FOLINIC ACID [Suspect]
     Active Substance: LEUCOVORIN
     Route: 042
  32. FOLINIC ACID [Suspect]
     Active Substance: LEUCOVORIN
     Route: 042
  33. FOLINIC ACID [Suspect]
     Active Substance: LEUCOVORIN
     Route: 042
  34. 5?FU [Suspect]
     Active Substance: FLUOROURACIL
     Dosage: 720 MG BOLUS?1800 MG DRIP (1)
     Route: 042
     Dates: start: 20140916, end: 20140917
  35. 5?FU [Suspect]
     Active Substance: FLUOROURACIL
     Dosage: 1600 MG BOLUS ?2400 MG DRIP (1)
     Route: 042
     Dates: start: 20140326, end: 20140327
  36. 5?FU [Suspect]
     Active Substance: FLUOROURACIL
     Dosage: 1280 MG BOLUS?1900 MG DRIP ()
     Route: 042
  37. 5?FU [Suspect]
     Active Substance: FLUOROURACIL
     Dosage: 720 MG BOLUS ? 1800 MG DRIP (1)
     Route: 042
     Dates: start: 20140930, end: 20141001
  38. OXALIPLATIN. [Suspect]
     Active Substance: OXALIPLATIN
     Dosage: (1)
     Route: 042
     Dates: start: 20140121, end: 20140121
  39. BEVACIZUMAB. [Suspect]
     Active Substance: BEVACIZUMAB
     Route: 042
     Dates: start: 20131008, end: 20131008
  40. 5?FU [Suspect]
     Active Substance: FLUOROURACIL
     Dosage: 1600 MG BOLUS?2400 MG DRIP (1)
     Route: 042
     Dates: start: 20140415, end: 20140415
  41. OXALIPLATIN. [Suspect]
     Active Substance: OXALIPLATIN
     Route: 042
  42. OXALIPLATIN. [Suspect]
     Active Substance: OXALIPLATIN
     Route: 042
  43. TINCTURE OF OPIUM [Concomitant]
     Active Substance: OPIUM
     Indication: PRODUCT USED FOR UNKNOWN INDICATION
     Dosage: (3)
     Route: 048
     Dates: start: 20140227
  44. LONQUEX [Concomitant]
     Active Substance: LIPEGFILGRASTIM
     Indication: PROPHYLAXIS
     Dosage: ()
     Route: 058
  45. 5?FU [Suspect]
     Active Substance: FLUOROURACIL
     Dosage: 720 MG BOLUS?1800 MG DRIP (1)
     Route: 042
     Dates: start: 20140701, end: 20140702
  46. 5?FU [Suspect]
     Active Substance: FLUOROURACIL
     Dosage: 720 MG BOLUS ?1800 MG DRIP (1)
     Route: 042
     Dates: start: 20140617, end: 20140618
  47. 5?FU [Suspect]
     Active Substance: FLUOROURACIL
     Dosage: 1600 MG BOLUS?2400 MG DRIP ()
     Route: 042
  48. OXALIPLATIN. [Suspect]
     Active Substance: OXALIPLATIN
     Route: 042
  49. OXALIPLATIN. [Suspect]
     Active Substance: OXALIPLATIN
     Route: 042
  50. PANTOZOL [Concomitant]
     Active Substance: PANTOPRAZOLE SODIUM
     Indication: PROPHYLAXIS
     Route: 048

REACTIONS (6)
  - Malignant neoplasm progression [Fatal]
  - Anaemia [Recovered/Resolved]
  - Pulmonary embolism [Recovered/Resolved]
  - Diarrhoea [Recovered/Resolved]
  - Neutropenia [Recovered/Resolved]
  - Febrile neutropenia [Recovered/Resolved]

NARRATIVE: CASE EVENT DATE: 20131030
